FAERS Safety Report 9086042 (Version 1)
Quarter: 2013Q1

REPORT INFORMATION
  Report Type: Spontaneous
  Country: US (occurrence: US)
  Receive Date: 20130201
  Receipt Date: 20130201
  Transmission Date: 20140127
  Serious: No
  Sender: FDA-Public Use
  Company Number: US-PFIZER INC-2013040815

PATIENT
  Age: 33 Year
  Sex: Female
  Weight: 83.9 kg

DRUGS (4)
  1. RELPAX [Suspect]
     Indication: MIGRAINE
     Dosage: UNK, AS NEEDED
  2. FELBATOL [Concomitant]
     Indication: CONVULSION
     Dosage: 2400 MG (THREE TABLETS OF 800 MG), 3X/DAY
     Route: 048
  3. REQUIP [Concomitant]
     Indication: RESTLESS LEGS SYNDROME
     Dosage: UNK
  4. AMBIEN [Concomitant]
     Indication: SLEEP DISORDER
     Dosage: UNK DAILY

REACTIONS (1)
  - Dysphonia [Unknown]
